FAERS Safety Report 8026932-3 (Version None)
Quarter: 2012Q1

REPORT INFORMATION
  Report Type: 
  Country: None (occurrence: None)
  Receive Date: 20120103
  Receipt Date: 20111215
  Transmission Date: 20120608
  Serious: Yes (Death, Hospitalization)
  Sender: FDA-Public Use
  Company Number: 2011SP053960

PATIENT
  Age: 65 Year
  Sex: Female

DRUGS (12)
  1. YBUJAKJ FIRTE WUTG D-VITAMIN [Concomitant]
  2. ZYPREXA [Concomitant]
  3. D VITAMIN [Concomitant]
  4. ZYPREXA [Concomitant]
  5. SYCREST  (ASENAPINE  /05706901/) [Suspect]
     Indication: PRODUCT USED FOR UNKNOWN INDICATION
     Dosage: 10 MG;QD;, 20 MG; QD,
     Dates: start: 20111113, end: 20111114
  6. SYCREST  (ASENAPINE  /05706901/) [Suspect]
     Indication: PRODUCT USED FOR UNKNOWN INDICATION
     Dosage: 10 MG;QD;, 20 MG; QD,
     Dates: start: 20111111, end: 20111111
  7. VALPROATE SODIUM [Concomitant]
  8. CISORDINOL ACUTARD [Concomitant]
  9. SOLIAN [Concomitant]
  10. LAMICTAL [Concomitant]
  11. TOPAMAX [Concomitant]
  12. SEROQUEL [Concomitant]

REACTIONS (7)
  - AGGRESSION [None]
  - ILEUS [None]
  - BILE DUCT OBSTRUCTION [None]
  - CARDIAC ARREST [None]
  - BLOOD CREATININE INCREASED [None]
  - AGITATION [None]
  - SOMNOLENCE [None]
